FAERS Safety Report 11671256 (Version 8)
Quarter: 2016Q1

REPORT INFORMATION
  Report Type: Report from Study
  Country: BE (occurrence: BE)
  Receive Date: 20151028
  Receipt Date: 20160307
  Transmission Date: 20160525
  Serious: Yes (Other)
  Sender: FDA-Public Use
  Company Number: BE-BEH-2015054556

PATIENT
  Age: 32 Year
  Sex: Female
  Weight: 63 kg

DRUGS (6)
  1. HIZENTRA [Suspect]
     Active Substance: HUMAN IMMUNOGLOBULIN G
     Dosage: 30 ML
     Route: 058
  2. HIZENTRA [Suspect]
     Active Substance: HUMAN IMMUNOGLOBULIN G
     Indication: PRODUCT USED FOR UNKNOWN INDICATION
  3. HIZENTRA [Suspect]
     Active Substance: HUMAN IMMUNOGLOBULIN G
  4. HIZENTRA [Suspect]
     Active Substance: HUMAN IMMUNOGLOBULIN G
     Route: 058
  5. IBUPROFEN. [Concomitant]
     Active Substance: IBUPROFEN
  6. ALL OTHER NON-THERAPEUTIC PRODUCTS [Concomitant]
     Active Substance: UNSPECIFIED INGREDIENT

REACTIONS (24)
  - Drug ineffective [Unknown]
  - Rhinitis [Unknown]
  - Headache [Unknown]
  - Vomiting [Recovered/Resolved]
  - Rhinorrhoea [Unknown]
  - Rhinitis [Recovered/Resolved]
  - Poor quality sleep [Recovered/Resolved]
  - Facial pain [Recovered/Resolved]
  - Respiratory tract infection [Unknown]
  - Facial pain [Unknown]
  - Rhinitis [Recovered/Resolved]
  - Myalgia [Unknown]
  - Facial pain [Recovered/Resolved]
  - Fatigue [Unknown]
  - Nausea [Recovered/Resolved]
  - Rhinitis [Unknown]
  - Pain [Unknown]
  - Headache [Recovered/Resolved]
  - Discomfort [Recovered/Resolved]
  - Ear discomfort [Unknown]
  - Oropharyngeal pain [Unknown]
  - Sneezing [Unknown]
  - Oropharyngeal pain [Recovered/Resolved]
  - Facial pain [Recovered/Resolved]

NARRATIVE: CASE EVENT DATE: 20151005
